FAERS Safety Report 7717708-2 (Version None)
Quarter: 2011Q3

REPORT INFORMATION
  Report Type: 
  Country: None (occurrence: None)
  Receive Date: 20110830
  Receipt Date: 20110824
  Transmission Date: 20111222
  Serious: Yes (Death, Hospitalization, Other)
  Sender: FDA-Public Use
  Company Number: US-AMGEN-USASP2010004583

PATIENT
  Age: 89 Year
  Sex: Female
  Weight: 77.551 kg

DRUGS (12)
  1. NORVASC [Concomitant]
  2. XALATAN [Concomitant]
  3. NPLATE [Suspect]
     Indication: IDIOPATHIC THROMBOCYTOPENIC PURPURA
     Dosage: 8 MUG/KG, UNK
     Dates: start: 20100527, end: 20100827
  4. LASIX [Concomitant]
  5. ADVAIR DISKUS 100/50 [Concomitant]
  6. FLUTICASONE PROPIONATE [Concomitant]
  7. FERREX 150 FORTE [Concomitant]
  8. ATENOLOL [Concomitant]
  9. SERTRALINE HYDROCHLORIDE [Concomitant]
  10. NPLATE [Suspect]
  11. LISINOPRIL [Concomitant]
  12. TRIAMCINOLONE [Concomitant]

REACTIONS (8)
  - PNEUMONIA ASPIRATION [None]
  - GENERAL PHYSICAL HEALTH DETERIORATION [None]
  - BEDRIDDEN [None]
  - THERAPEUTIC RESPONSE DECREASED [None]
  - CEREBROVASCULAR ACCIDENT [None]
  - SOMNOLENCE [None]
  - DYSPNOEA [None]
  - MULTIMORBIDITY [None]
